FAERS Safety Report 7522888-8 (Version None)
Quarter: 2011Q2

REPORT INFORMATION
  Report Type: 
  Country: None (occurrence: None)
  Receive Date: 20110603
  Receipt Date: 20110530
  Transmission Date: 20111010
  Serious: Yes (Death, Hospitalization)
  Sender: FDA-Public Use
  Company Number: PHHY2011JP16867

PATIENT
  Age: 67 Year
  Sex: Female
  Weight: 55 kg

DRUGS (11)
  1. LIPITOR [Concomitant]
     Indication: HYPERLIPIDAEMIA
     Dosage: 1 DF, UNK
     Route: 048
  2. PREDNISOLONE [Concomitant]
     Indication: ACUTE LYMPHOCYTIC LEUKAEMIA
  3. METFORMIN HCL [Concomitant]
     Indication: DIABETES MELLITUS
     Dosage: 500 MG, UNK
     Route: 048
  4. AMARYL [Concomitant]
     Indication: DIABETES MELLITUS
     Dosage: 2 DF, UNK
     Route: 048
  5. GLEEVEC [Suspect]
     Indication: ACUTE LYMPHOCYTIC LEUKAEMIA
     Dosage: 600 MG, DAILY
     Route: 048
  6. CYCLOPHOSPHAMIDE [Concomitant]
     Indication: ACUTE LYMPHOCYTIC LEUKAEMIA
  7. AMLODIPINE [Concomitant]
     Indication: HYPERTENSION
     Dosage: 5 MG, UNK
     Route: 048
  8. HALCION [Concomitant]
     Dosage: 1 DF, UNK
     Route: 048
  9. DAUNORUBICIN HCL [Concomitant]
     Indication: ACUTE LYMPHOCYTIC LEUKAEMIA
  10. VINCRISTINE [Concomitant]
     Indication: ACUTE LYMPHOCYTIC LEUKAEMIA
  11. DIOVAN [Concomitant]
     Indication: HYPERTENSION
     Dosage: 80 MG, UNK
     Route: 048

REACTIONS (17)
  - PANCYTOPENIA [None]
  - CARDIAC FAILURE [None]
  - GENERALISED OEDEMA [None]
  - URINE OUTPUT DECREASED [None]
  - BLAST CELLS PRESENT [None]
  - THERAPEUTIC RESPONSE DECREASED [None]
  - DEPRESSED LEVEL OF CONSCIOUSNESS [None]
  - WHITE BLOOD CELL COUNT DECREASED [None]
  - FLUID RETENTION [None]
  - CARDIAC ARREST [None]
  - BONE MARROW FAILURE [None]
  - FACE OEDEMA [None]
  - DYSPNOEA [None]
  - C-REACTIVE PROTEIN INCREASED [None]
  - RESPIRATORY ARREST [None]
  - PULMONARY CONGESTION [None]
  - PYREXIA [None]
